FAERS Safety Report 21903687 (Version 1)
Quarter: 2023Q1

REPORT INFORMATION
  Report Type: Spontaneous
  Country: US (occurrence: US)
  Receive Date: 20230124
  Receipt Date: 20230124
  Transmission Date: 20230417
  Serious: No
  Sender: FDA-Public Use
  Company Number: US-PFIZER INC-PV202300011731

PATIENT
  Age: 71 Year
  Sex: Female
  Weight: 68.04 kg

DRUGS (2)
  1. LEVOTHYROXINE SODIUM [Suspect]
     Active Substance: LEVOTHYROXINE SODIUM
     Indication: Thyroid disorder
     Dosage: 25 MG, 1X/DAY (ON AN EMPTY STOMACH)
     Route: 048
     Dates: start: 20230117
  2. RETACRIT [Concomitant]
     Active Substance: EPOETIN ALFA-EPBX
     Indication: Anaemia
     Dosage: 40000 MG, WEEKLY (ONCE A WEEK BY INJECTION)

REACTIONS (3)
  - Malaise [Unknown]
  - Nausea [Unknown]
  - Wrong strength [Unknown]

NARRATIVE: CASE EVENT DATE: 20230117
